FAERS Safety Report 5390979-6 (Version None)
Quarter: 2007Q3

REPORT INFORMATION
  Report Type: 
  Country: None (occurrence: None)
  Receive Date: 20070716
  Receipt Date: 20050927
  Transmission Date: 20080115
  Serious: Yes (Hospitalization)
  Sender: FDA-Public Use
  Company Number: MPS1-10434

PATIENT
  Age: 31 Year
  Sex: Male
  Weight: 55.7 kg

DRUGS (1)
  1. ALDURAZYME [Suspect]
     Indication: MUCOPOLYSACCHARIDOSIS I
     Dosage: 34.8 MG QWK IV
     Route: 042
     Dates: start: 20030529

REACTIONS (4)
  - BLINDNESS [None]
  - OCULAR VASCULAR DISORDER [None]
  - SIALOADENITIS [None]
  - VASCULAR OCCLUSION [None]
